FAERS Safety Report 13288221 (Version 1)
Quarter: 2017Q1

REPORT INFORMATION
  Report Type: Spontaneous
  Country: US (occurrence: US)
  Receive Date: 20170302
  Receipt Date: 20170302
  Transmission Date: 20170428
  Serious: No
  Sender: FDA-Public Use
  Company Number: US-APOTEX-2017AP007434

PATIENT
  Age: 81 Year
  Sex: Male

DRUGS (2)
  1. ALENDRONATE SODIUM. [Suspect]
     Active Substance: ALENDRONATE SODIUM
     Indication: OSTEOPOROSIS
     Dosage: 70 MG, UNK
     Route: 065
  2. PREDNISONE. [Suspect]
     Active Substance: PREDNISONE
     Indication: EMPHYSEMA
     Route: 048

REACTIONS (3)
  - Groin pain [Unknown]
  - Bone disorder [Unknown]
  - X-ray of pelvis and hip abnormal [Unknown]
